FAERS Safety Report 6968373-3 (Version None)
Quarter: 2010Q3

REPORT INFORMATION
  Report Type: 
  Country: None (occurrence: None)
  Receive Date: 20100901
  Receipt Date: 20100819
  Transmission Date: 20110219
  Serious: Yes (Hospitalization, Disabling)
  Sender: FDA-Public Use
  Company Number: 2010SP002792

PATIENT
  Age: 27 Year
  Sex: Female
  Weight: 72.5755 kg

DRUGS (3)
  1. NUVARING [Suspect]
     Indication: CONTRACEPTION
     Dates: start: 20060101, end: 20080501
  2. STEROIDS [Concomitant]
  3. MULTI-VITAMINS [Concomitant]

REACTIONS (8)
  - BACK INJURY [None]
  - BLINDNESS [None]
  - CEREBRAL THROMBOSIS [None]
  - CEREBROVASCULAR ACCIDENT [None]
  - HYPERSENSITIVITY [None]
  - INTRACRANIAL VENOUS SINUS THROMBOSIS [None]
  - ROAD TRAFFIC ACCIDENT [None]
  - SUBARACHNOID HAEMORRHAGE [None]
